FAERS Safety Report 14636671 (Version 1)
Quarter: 2018Q1

REPORT INFORMATION
  Report Type: Spontaneous
  Country: FR (occurrence: FR)
  Receive Date: 20180314
  Receipt Date: 20180314
  Transmission Date: 20180509
  Serious: Yes (Hospitalization)
  Sender: FDA-Public Use
  Company Number: FR-TEVA-2018-FR-867361

PATIENT
  Age: 68 Year
  Sex: Male
  Weight: 66 kg

DRUGS (9)
  1. NAVELBINE [Suspect]
     Active Substance: VINORELBINE TARTRATE
     Indication: SQUAMOUS CELL CARCINOMA
  2. CARBOPLATIN. [Suspect]
     Active Substance: CARBOPLATIN
     Indication: SQUAMOUS CELL CARCINOMA
  3. CITALOPRAM [Concomitant]
     Active Substance: CITALOPRAM HYDROBROMIDE
     Route: 048
  4. HAVLANE, COMPRIM? S?CABLE [Concomitant]
     Route: 048
  5. ZARZIO [Concomitant]
     Active Substance: FILGRASTIM
  6. PLAVIX [Concomitant]
     Active Substance: CLOPIDOGREL BISULFATE
     Route: 048
  7. LOVENOX [Concomitant]
     Active Substance: ENOXAPARIN SODIUM
     Route: 058
  8. LANSOPRAZOLE. [Concomitant]
     Active Substance: LANSOPRAZOLE
     Route: 048
  9. DUROGESIC [Concomitant]
     Active Substance: FENTANYL
     Route: 062

REACTIONS (2)
  - Hyperthermia [Recovered/Resolved]
  - Sepsis [Recovered/Resolved]
